FAERS Safety Report 9936349 (Version 1)
Quarter: 2014Q1

REPORT INFORMATION
  Report Type: Spontaneous
  Country: US (occurrence: US)
  Receive Date: 20140228
  Receipt Date: 20140228
  Transmission Date: 20141002
  Serious: Yes (Other)
  Sender: FDA-Public Use
  Company Number: US-AMGEN-USASP2014002201

PATIENT
  Age: 50 Year
  Sex: Female

DRUGS (9)
  1. ENBREL [Suspect]
     Indication: RHEUMATOID ARTHRITIS
     Dosage: 50 MG, QWK
     Route: 058
  2. PREDNISONE [Concomitant]
     Dosage: 1 MG, UNK
  3. URIBEL [Concomitant]
     Dosage: 118 MG, UNK
  4. GEMFIBROZIL [Concomitant]
     Dosage: 600 MG, UNK
  5. GLIMEPIRIDE [Concomitant]
     Dosage: 1 MG, UNK
  6. LEVOTHYROXINE [Concomitant]
     Dosage: 88 MUG, UNK
  7. LOSARTAN POTASSIUM [Concomitant]
     Dosage: 25 MG, UNK
  8. TYLENOL                            /00020001/ [Concomitant]
     Dosage: 325 MG, UNK
  9. LIALDA [Concomitant]
     Dosage: 1.2 G, UNK

REACTIONS (1)
  - Colitis ulcerative [Unknown]
